FAERS Safety Report 9492811 (Version 2)
Quarter: 2013Q4

REPORT INFORMATION
  Report Type: Spontaneous
  Country: DE (occurrence: DE)
  Receive Date: 20130830
  Receipt Date: 20131008
  Transmission Date: 20140711
  Serious: Yes (Other)
  Sender: FDA-Public Use
  Company Number: DE-ROCHE-1267194

PATIENT
  Age: 71 Year
  Sex: Male

DRUGS (2)
  1. RITUXIMAB [Suspect]
     Indication: RICHTER^S SYNDROME
     Dosage: 2 CYCLE RECEIVED
     Route: 065
  2. BENDAMUSTINE [Suspect]
     Indication: RICHTER^S SYNDROME
     Dosage: 2 CYCLE
     Route: 065

REACTIONS (2)
  - Progressive multifocal leukoencephalopathy [Unknown]
  - Leukopenia [Recovered/Resolved]
